FAERS Safety Report 9687224 (Version 2)
Quarter: 2014Q1

REPORT INFORMATION
  Report Type: Spontaneous
  Country: US (occurrence: US)
  Receive Date: 20131113
  Receipt Date: 20140106
  Transmission Date: 20141002
  Serious: Yes (Other)
  Sender: FDA-Public Use
  Company Number: US-009507513-1311USA003910

PATIENT
  Sex: Female

DRUGS (3)
  1. HYZAAR [Suspect]
     Dosage: 25/100MG DAILY
     Route: 048
     Dates: start: 20010519
  2. HYZAAR [Suspect]
     Dosage: 1 DF, DAILY: 100/25MG
     Route: 048
  3. LOSARTAN POTASSIUM (+) HYDROCHLOROTHIAZIDE [Suspect]
     Dosage: UNK
     Route: 048

REACTIONS (3)
  - Neoplasm malignant [Not Recovered/Not Resolved]
  - Gastrostomy [Not Recovered/Not Resolved]
  - Hypertension [Unknown]
